FAERS Safety Report 4330016-5 (Version None)
Quarter: 2004Q1

REPORT INFORMATION
  Report Type: 
  Country: None (occurrence: None)
  Receive Date: 20040329
  Receipt Date: 20040316
  Transmission Date: 20041129
  Serious: No
  Sender: FDA-Public Use
  Company Number: 04H-062-0254176-00

PATIENT
  Age: 57 Year
  Sex: Female

DRUGS (3)
  1. HEPARIN SODIUM [Suspect]
     Indication: ANTICOAGULANT THERAPY
     Dosage: SUBCUTANEOUS
     Route: 058
     Dates: start: 19920101, end: 19970101
  2. PROTHROMBINEX [Concomitant]
  3. PHYTONADIONE [Concomitant]

REACTIONS (1)
  - CEREBRAL ARTERY OCCLUSION [None]
